FAERS Safety Report 24644068 (Version 3)
Quarter: 2025Q1

REPORT INFORMATION
  Report Type: Report from Study
  Country: FR (occurrence: FR)
  Receive Date: 20241120
  Receipt Date: 20250203
  Transmission Date: 20250409
  Serious: Yes (Death, Hospitalization)
  Sender: BIOGEN
  Company Number: FR-BIOGEN-2023BI01199391

PATIENT
  Age: 60 Year
  Sex: Male
  Weight: 90.8 kg

DRUGS (21)
  1. TOFERSEN [Suspect]
     Active Substance: TOFERSEN
     Indication: Amyotrophic lateral sclerosis
     Route: 050
     Dates: start: 20221110, end: 20241031
  2. RILUZOLE [Concomitant]
     Active Substance: RILUZOLE
     Indication: Amyotrophic lateral sclerosis
     Dosage: 100 MG/DAY
     Route: 050
     Dates: start: 202207
  3. ALPRAZOLAM [Concomitant]
     Active Substance: ALPRAZOLAM
     Indication: Product used for unknown indication
     Dosage: 1 TABLET IN THE MORNING, 1 TABLET IN THE EVENING
     Route: 050
  4. GAVISCON [Concomitant]
     Active Substance: ALUMINUM HYDROXIDE\MAGNESIUM CARBONATE
     Indication: Product used for unknown indication
     Dosage: ONE IN THE MORNING, NOON AND EVENING
     Route: 050
  5. Spasfon [Concomitant]
     Indication: Product used for unknown indication
     Dosage: TWO IN THE MORNINGS, NOON AND EVENING
     Route: 050
  6. .ALPHA.-TOCOPHEROL ACETATE, D- [Concomitant]
     Active Substance: .ALPHA.-TOCOPHEROL ACETATE, D-
     Indication: Product used for unknown indication
     Route: 050
  7. BROMAZEPAM [Concomitant]
     Active Substance: BROMAZEPAM
     Indication: Product used for unknown indication
     Dosage: 1 TABLET IN THE EVENING
     Route: 050
  8. SPAGULAX [Concomitant]
     Active Substance: HERBALS\PLANTAGO OVATA SEED
     Indication: Product used for unknown indication
     Dosage: ONE IN THE MORNING AND NOON
     Route: 050
  9. HUMALOG [Concomitant]
     Active Substance: INSULIN LISPRO
     Indication: Product used for unknown indication
     Route: 050
  10. METFORMIN PAMOATE [Concomitant]
     Active Substance: METFORMIN PAMOATE
     Indication: Product used for unknown indication
     Dosage: 1 TABLET IN THE MORNING, 1 TABLET IN THE EVENING
     Route: 050
  11. IVABRADINE [Concomitant]
     Active Substance: IVABRADINE
     Indication: Product used for unknown indication
     Dosage: 1 TABLET IN THE MORNING, 1 TABLET IN THE EVENING
     Route: 050
  12. EZETIMIBE [Concomitant]
     Active Substance: EZETIMIBE
     Indication: Product used for unknown indication
     Dosage: 1 TABLET IN THE EVENING
     Route: 050
  13. AMLODIPINE [Concomitant]
     Active Substance: AMLODIPINE BESYLATE
     Indication: Product used for unknown indication
     Dosage: 1 TABLET IN THE MORNING
     Route: 050
  14. PLAVIX [Concomitant]
     Active Substance: CLOPIDOGREL BISULFATE
     Indication: Product used for unknown indication
     Dosage: 1 TABLET IN THE MORNING, STOPPED 5 DAYS BEFORE THE PROCEDURE
     Route: 050
  15. FENTANYL [Concomitant]
     Active Substance: FENTANYL
     Indication: Product used for unknown indication
     Route: 050
  16. CEFTRIAXONE [Concomitant]
     Active Substance: CEFTRIAXONE
     Indication: Product used for unknown indication
     Route: 050
  17. METRONIDAZOLE [Concomitant]
     Active Substance: METRONIDAZOLE
     Indication: Product used for unknown indication
     Route: 050
  18. LOVENOX [Concomitant]
     Active Substance: ENOXAPARIN SODIUM
     Indication: Product used for unknown indication
     Route: 050
  19. IVABRADINE [Concomitant]
     Active Substance: IVABRADINE
     Indication: Heart rate abnormal
     Route: 050
  20. MORPHINE [Concomitant]
     Active Substance: MORPHINE
     Indication: Product used for unknown indication
     Route: 050
  21. ATARAX [Concomitant]
     Active Substance: HYDROXYZINE HYDROCHLORIDE
     Indication: Product used for unknown indication
     Route: 050

REACTIONS (7)
  - Death [Fatal]
  - Retroperitoneal haematoma [Unknown]
  - Pancreatitis acute [Unknown]
  - Meningitis aseptic [Not Recovered/Not Resolved]
  - CSF red blood cell count positive [Unknown]
  - CSF glucose abnormal [Recovered/Resolved]
  - Post procedural haematoma [Unknown]

NARRATIVE: CASE EVENT DATE: 20230213
